FAERS Safety Report 23654037 (Version 2)
Quarter: 2024Q3

REPORT INFORMATION
  Report Type: Report from Study
  Country: US (occurrence: US)
  Receive Date: 20240320
  Receipt Date: 20240725
  Transmission Date: 20241017
  Serious: Yes (Other)
  Sender: ABBVIE
  Company Number: US-ABBVIE-5683518

PATIENT
  Age: 17 Year
  Sex: Female

DRUGS (3)
  1. RINVOQ [Suspect]
     Active Substance: UPADACITINIB
     Indication: Dermatitis atopic
     Dosage: FORM STRENGTH: 30 MILLIGRAM THERAPY END DATE JAN 2023
     Route: 048
     Dates: start: 20230101
  2. RINVOQ [Suspect]
     Active Substance: UPADACITINIB
     Indication: Dermatitis atopic
     Dosage: FORM STRENGTH: 15 MILLIGRAM
     Route: 048
     Dates: start: 20230115, end: 20240220
  3. RINVOQ [Suspect]
     Active Substance: UPADACITINIB
     Indication: Dermatitis atopic
     Dosage: FORM STRENGTH: 15 MILLIGRAM THERAPY START DATE 2024
     Route: 048

REACTIONS (7)
  - Branchial cyst [Unknown]
  - Nasopharyngitis [Unknown]
  - Sinusitis [Unknown]
  - Eczema [Recovered/Resolved]
  - Acne [Recovered/Resolved]
  - Wound secretion [Recovered/Resolved]
  - Papule [Unknown]

NARRATIVE: CASE EVENT DATE: 20231001
